FAERS Safety Report 18634592 (Version 3)
Quarter: 2021Q1

REPORT INFORMATION
  Report Type: Spontaneous
  Country: CA (occurrence: CA)
  Receive Date: 20201218
  Receipt Date: 20210106
  Transmission Date: 20210419
  Serious: Yes (Hospitalization, Other)
  Sender: FDA-Public Use
  Company Number: NVSC2020CA333741

PATIENT
  Sex: Female

DRUGS (2)
  1. GILENYA [Suspect]
     Active Substance: FINGOLIMOD HYDROCHLORIDE
     Indication: MULTIPLE SCLEROSIS
     Dosage: UNK
     Route: 065
     Dates: start: 2016
  2. TYSABRI [Suspect]
     Active Substance: NATALIZUMAB
     Indication: PRODUCT USED FOR UNKNOWN INDICATION
     Dosage: 1 DF (1 MONTH AGO)
     Route: 065

REACTIONS (8)
  - Multiple sclerosis relapse [Recovering/Resolving]
  - Progressive multifocal leukoencephalopathy [Recovering/Resolving]
  - JC polyomavirus test positive [Recovering/Resolving]
  - Dysphagia [Unknown]
  - Systemic lupus erythematosus [Recovering/Resolving]
  - Multiple sclerosis [Unknown]
  - Dysstasia [Unknown]
  - Pancreatitis [Recovering/Resolving]
